FAERS Safety Report 12508141 (Version 7)
Quarter: 2019Q3

REPORT INFORMATION
  Report Type: Spontaneous
  Country: US (occurrence: US)
  Receive Date: 20160629
  Receipt Date: 20190909
  Transmission Date: 20191004
  Serious: No
  Sender: FDA-Public Use
  Company Number: US-PFIZER INC-2016289008

PATIENT
  Age: 63 Year
  Sex: Male
  Weight: 81.65 kg

DRUGS (32)
  1. SKELAXIN [Suspect]
     Active Substance: METAXALONE
     Indication: MUSCLE RELAXANT THERAPY
     Dosage: 800 MG, 2X/DAY
     Route: 048
  2. SKELAXIN [Suspect]
     Active Substance: METAXALONE
     Indication: PAIN
     Dosage: 800 MG, UNK
  3. OXYGEN. [Concomitant]
     Active Substance: OXYGEN
     Dosage: UNK,(USE AS DIRECTED)
  4. NEXIUM [Concomitant]
     Active Substance: ESOMEPRAZOLE MAGNESIUM
     Dosage: 40 MG, 2X/DAY
     Route: 048
  5. ANTIVERT [Concomitant]
     Active Substance: MECLIZINE HYDROCHLORIDE
     Dosage: 25 MG, (TAKE 1 TABLET EVERY 6 HOURS)
     Route: 048
  6. SUMATRIPTAN. [Concomitant]
     Active Substance: SUMATRIPTAN
     Dosage: 6MG/0.5 ML,(INJECT 0.5ML UNDER SKIN ONCE, MAY REPEAT )
  7. PROAIR HFA [Concomitant]
     Active Substance: ALBUTEROL SULFATE
     Dosage: 90 UG, AS NEEDED,(ONE INHALATION FOUR TIME PER DAY AS NEEDED.)
     Route: 048
  8. DONNATAL [Concomitant]
     Active Substance: ATROPINE SULFATE\HYOSCYAMINE SULFATE\PHENOBARBITAL\SCOPOLAMINE HYDROBROMIDE
     Dosage: 16.2MG-0.1037MG-0.0194 MG-0.0065MG, AS NEEDED,3 TIMES A DAY
     Route: 048
  9. ROPINIROLE HCL [Concomitant]
     Active Substance: ROPINIROLE HYDROCHLORIDE
     Dosage: 2 MG, 3X/DAY
     Route: 048
  10. SKELAXIN [Suspect]
     Active Substance: METAXALONE
     Dosage: 800 MG, 3X/DAY
  11. LATANOPROST. [Concomitant]
     Active Substance: LATANOPROST
     Dosage: 0.005 %, 1X/DAY,(IN STILL 1 DROP TO BOTH EYE AT BED TIME)
  12. LEVSIN [Concomitant]
     Active Substance: HYOSCYAMINE SULFATE
     Dosage: 0.125 MG, AS NEEDED (TAKE 1-2 TABLETS BY ORAL ROUTE EVERY 4-6 HOURS )
     Route: 048
  13. SUCCINATE SODIUM [Concomitant]
     Dosage: UNK, (1 HOUR AFTER THE FIRST DOSE IF HEADACHE RETURNS. MAX 2 DOSES IN 24 HOURS)
  14. IMITREX [Concomitant]
     Active Substance: SUMATRIPTAN SUCCINATE
     Dosage: 6 MG, MAY BE REPEATED 1 HOUR AFTER THE FIRST DO)
     Route: 058
  15. TIZANIDINE HCL [Concomitant]
     Active Substance: TIZANIDINE HYDROCHLORIDE
     Dosage: 4 MG, AS NEEDED, EVERY 8 HOURS AS NEEDED NOT TO EXCEED 3 DOSE IN 24 HOUR
     Route: 048
  16. IPRATROPIUM/SALBUTAMOL [Concomitant]
     Dosage: 0.5 MG-3 MG (2.5 MG BASE)/3ML, USE 1 VIAL IN NEBULIZER 3 TO 4 TIMES DAILY
  17. PRAVASTATIN SODIUM. [Concomitant]
     Active Substance: PRAVASTATIN SODIUM
     Dosage: 80 MG, 1X/DAY
     Route: 048
  18. SINGULAIR [Concomitant]
     Active Substance: MONTELUKAST SODIUM
     Dosage: 10 MG, 1X/DAY
     Route: 048
  19. SKELAXIN [Suspect]
     Active Substance: METAXALONE
     Indication: MYALGIA
     Dosage: 800 MG, 3X/DAY, LONG WHITE PILL
     Route: 048
     Dates: start: 20160121
  20. ANUSOL-HC [Concomitant]
     Dosage: 2.5 %, 2X/DAY(EVERY DAY TO THE AFFECTED AREA(S))
     Route: 061
  21. WELCHOL [Concomitant]
     Active Substance: COLESEVELAM HYDROCHLORIDE
     Dosage: 625 MG, 2X/DAY,(3 TABLET)
     Route: 048
  22. SYMBICORT [Concomitant]
     Active Substance: BUDESONIDE\FORMOTEROL FUMARATE DIHYDRATE
     Dosage: 160MCG-4.5MCG/ACTUATION,INHALE 2 PUFF BY INHALATION ROUTE 2 TIME EVERY DAY IN THE MORNING AND EVENIN
  23. BUTALBITAL-ACETAMINOPHEN-CAFFEINE [Concomitant]
     Dosage: 50MG-325MG-40MG, ( THREE TIMES DAILY AS NEEDED.)
     Route: 048
  24. ROPINIROLE. [Concomitant]
     Active Substance: ROPINIROLE
     Indication: PAIN
     Dosage: 2 MG, 3X/DAY, SMALL PILL
     Route: 048
     Dates: start: 2015
  25. FLOVENT HFA [Concomitant]
     Active Substance: FLUTICASONE PROPIONATE
     Dosage: 220 UG, 2X/DAY
     Route: 045
  26. ROPINIROLE HCL [Concomitant]
     Active Substance: ROPINIROLE HYDROCHLORIDE
     Dosage: 1 MG, 3X/DAY
     Route: 048
  27. FLONASE [Concomitant]
     Active Substance: FLUTICASONE PROPIONATE
     Dosage: 50MG/ACTUATION,1 SPRAY BY INTRANASAL ROUTE 2 TIME EVERY DAY IN EACH NOSTRIL
     Route: 045
  28. NASONEX [Concomitant]
     Active Substance: MOMETASONE FUROATE
     Dosage: 50 MG,INHALE 2 SPRAY EVERY DAY IN EACH NOSTRIL.
     Route: 045
  29. AMLODIPINE BESYLATE. [Concomitant]
     Active Substance: AMLODIPINE BESYLATE
     Dosage: 5 MG, 1X/DAY
     Route: 048
  30. CHERATUSSIN AC [Concomitant]
     Active Substance: CODEINE PHOSPHATE\GUAIFENESIN
     Dosage: 5 ML, 1X/DAY
     Route: 048
  31. MIRTAZAPINE. [Concomitant]
     Active Substance: MIRTAZAPINE
     Dosage: 45 MG, 1X/DAY
     Route: 048
  32. GABAPENTIN. [Concomitant]
     Active Substance: GABAPENTIN
     Dosage: 300 MG, 3X/DAY
     Route: 048

REACTIONS (3)
  - Insomnia [Not Recovered/Not Resolved]
  - Back pain [Unknown]
  - Tremor [Unknown]

NARRATIVE: CASE EVENT DATE: 2013
